FAERS Safety Report 19128171 (Version 1)
Quarter: 2021Q2

REPORT INFORMATION
  Report Type: Spontaneous
  Country: US (occurrence: US)
  Receive Date: 20210413
  Receipt Date: 20210413
  Transmission Date: 20210717
  Serious: Yes (Hospitalization)
  Sender: FDA-Public Use
  Company Number: None

PATIENT
  Age: 61 Year
  Sex: Female
  Weight: 76.3 kg

DRUGS (2)
  1. PFIZER?BIONTECH COVID?19 VACCINE [Suspect]
     Active Substance: TOZINAMERAN
  2. DILTIAZEM 24HR ER 180 MG CAP [Suspect]
     Active Substance: DILTIAZEM
     Dates: start: 20210322

REACTIONS (3)
  - Rash [None]
  - Subcorneal pustular dermatosis [None]
  - Post vaccination syndrome [None]
